FAERS Safety Report 24899976 (Version 2)
Quarter: 2025Q1

REPORT INFORMATION
  Report Type: Report from Study
  Country: US (occurrence: US)
  Receive Date: 20250129
  Receipt Date: 20250225
  Transmission Date: 20250408
  Serious: Yes (Other)
  Sender: GILEAD
  Company Number: US-GILEAD-2025-0701441

PATIENT
  Age: 74 Year
  Sex: Male

DRUGS (2)
  1. AMBRISENTAN [Suspect]
     Active Substance: AMBRISENTAN
     Indication: Pulmonary arterial hypertension
     Dosage: 10 MG, QD
     Route: 065
     Dates: start: 202405
  2. TYVASO DPI [Suspect]
     Active Substance: TREPROSTINIL
     Indication: Pulmonary arterial hypertension
     Dosage: 32 UG, QID
     Route: 065
     Dates: start: 202406

REACTIONS (12)
  - Bendopnoea [Unknown]
  - Increased upper airway secretion [Unknown]
  - Cough [Unknown]
  - Throat irritation [Not Recovered/Not Resolved]
  - Dyspnoea exertional [Unknown]
  - General physical health deterioration [Unknown]
  - Decreased activity [Unknown]
  - Chest pain [Unknown]
  - Fatigue [Unknown]
  - Peripheral swelling [Unknown]
  - Joint swelling [Unknown]
  - Affective disorder [Unknown]
